FAERS Safety Report 10420056 (Version 1)
Quarter: 2014Q3

REPORT INFORMATION
  Report Type: Spontaneous
  Country: US (occurrence: US)
  Receive Date: 20140829
  Receipt Date: 20140829
  Transmission Date: 20150326
  Serious: Yes (Death)
  Sender: FDA-Public Use
  Company Number: US-BAUSCH-BL-2014-004101

PATIENT
  Sex: Female

DRUGS (1)
  1. XENAZINE [Suspect]
     Active Substance: TETRABENAZINE
     Indication: HUNTINGTON^S DISEASE
     Dosage: 12.5MG THREE TABLETS AT 6AM, TWO TABLETS AT 1PM, AND TWO TABLETS AT 8PM
     Route: 048
     Dates: start: 201110

REACTIONS (1)
  - Death [Fatal]
